FAERS Safety Report 13608911 (Version 2)
Quarter: 2017Q2

REPORT INFORMATION
  Report Type: Spontaneous
  Country: RU (occurrence: RU)
  Receive Date: 20170602
  Receipt Date: 20170614
  Transmission Date: 20170830
  Serious: Yes (Hospitalization)
  Sender: FDA-Public Use
  Company Number: RU-ASTRAZENECA-2017SE58319

PATIENT
  Age: 1 Year
  Sex: Male

DRUGS (1)
  1. PULMICORT TURBUHALER [Suspect]
     Active Substance: BUDESONIDE
     Indication: OBSTRUCTIVE AIRWAYS DISORDER
     Dosage: 0.25 TWICE DAILY
     Route: 055
     Dates: start: 20170523

REACTIONS (5)
  - Dyspnoea [Recovering/Resolving]
  - Rales [Recovering/Resolving]
  - Product use issue [Unknown]
  - Off label use [Unknown]
  - Leukocytosis [Unknown]
